FAERS Safety Report 20623987 (Version 1)
Quarter: 2022Q1

REPORT INFORMATION
  Report Type: Spontaneous
  Country: US (occurrence: US)
  Receive Date: 20220322
  Receipt Date: 20220322
  Transmission Date: 20220423
  Serious: No
  Sender: FDA-Public Use
  Company Number: US-ALLERGAN-2112264US

PATIENT
  Age: 56 Year
  Sex: Female

DRUGS (1)
  1. LATISSE [Suspect]
     Active Substance: BIMATOPROST
     Indication: Growth of eyelashes
     Dosage: 1 DROP PER EYE PER APPLICATOR
     Route: 061
     Dates: end: 202103

REACTIONS (2)
  - Hypersensitivity [Not Recovered/Not Resolved]
  - Ocular hyperaemia [Recovered/Resolved]
